FAERS Safety Report 7574285-7 (Version None)
Quarter: 2011Q2

REPORT INFORMATION
  Report Type: 
  Country: None (occurrence: None)
  Receive Date: 20110627
  Receipt Date: 20110617
  Transmission Date: 20111010
  Serious: Yes (Hospitalization)
  Sender: FDA-Public Use
  Company Number: SI-JNJFOC-20110609406

PATIENT
  Sex: Male

DRUGS (13)
  1. TRAMADOL HCL [Suspect]
     Indication: PROCEDURAL PAIN
     Dosage: 37,5 MG/325 MG
     Route: 048
     Dates: start: 20110324, end: 20110325
  2. NOOTROPIL [Concomitant]
     Route: 065
  3. HEPARIN SODIUM [Concomitant]
     Route: 065
  4. BERODUAL [Concomitant]
  5. NITROLINGUAL [Concomitant]
     Route: 065
  6. LACIPIL [Concomitant]
     Route: 065
  7. BISOPROLOL FUMARATE [Concomitant]
     Route: 065
  8. CARDURA [Concomitant]
     Route: 065
  9. EDEMID [Concomitant]
     Route: 065
  10. TEOTARD [Concomitant]
     Route: 065
  11. PERINDOPRIL ERBUMINE [Concomitant]
     Route: 065
  12. ATORVASTATIN [Concomitant]
     Route: 065
  13. SERETIDE [Concomitant]
     Route: 065

REACTIONS (3)
  - SOMNOLENCE [None]
  - CHRONIC OBSTRUCTIVE PULMONARY DISEASE [None]
  - CARDIAC FAILURE CONGESTIVE [None]
